FAERS Safety Report 8983697 (Version 1)
Quarter: 2012Q4

REPORT INFORMATION
  Report Type: Report from Study
  Country: CA (occurrence: CA)
  Receive Date: 20121221
  Receipt Date: 20121221
  Transmission Date: 20130627
  Serious: Yes (Hospitalization)
  Sender: FDA-Public Use
  Company Number: CA-ABBOTT-12P-028-1018257-00

PATIENT
  Age: 17 Year
  Sex: Male

DRUGS (2)
  1. HUMIRA [Suspect]
     Indication: COLITIS ULCERATIVE
     Route: 058
     Dates: start: 20121019
  2. METHOTREXATE [Concomitant]
     Indication: COLITIS ULCERATIVE

REACTIONS (2)
  - Crohn^s disease [Recovered/Resolved]
  - Drug ineffective [Recovering/Resolving]
